FAERS Safety Report 24341766 (Version 3)
Quarter: 2024Q4

REPORT INFORMATION
  Report Type: Spontaneous
  Country: RU (occurrence: RU)
  Receive Date: 20240920
  Receipt Date: 20241007
  Transmission Date: 20250114
  Serious: Yes (Other)
  Sender: MERCK
  Company Number: RU-009507513-2409RUS006415

PATIENT
  Age: 54 Year

DRUGS (6)
  1. PEMBROLIZUMAB [Suspect]
     Active Substance: PEMBROLIZUMAB
     Indication: Non-small cell lung cancer
     Dosage: 200 MILLIGRAM, Q3W, 8 COURSES
     Route: 042
     Dates: start: 202307, end: 202312
  2. PEMBROLIZUMAB [Suspect]
     Active Substance: PEMBROLIZUMAB
     Indication: K-ras gene mutation
  3. PEMETREXED [Suspect]
     Active Substance: PEMETREXED
     Indication: Non-small cell lung cancer
     Dosage: 500 MILLIGRAM/SQ. METER, Q3W, 8 COURSES
     Route: 042
     Dates: start: 202307, end: 202312
  4. PEMETREXED [Suspect]
     Active Substance: PEMETREXED
     Indication: K-ras gene mutation
  5. CARBOPLATIN [Suspect]
     Active Substance: CARBOPLATIN
     Indication: Non-small cell lung cancer
     Dosage: AREA UNDER CURVE (AUC) 5, Q3W
     Route: 042
     Dates: start: 202307, end: 2023
  6. CARBOPLATIN [Suspect]
     Active Substance: CARBOPLATIN
     Indication: K-ras gene mutation

REACTIONS (9)
  - Leukopenia [Unknown]
  - Neutropenia [Unknown]
  - Nausea [Unknown]
  - Asthenia [Unknown]
  - Peripheral sensory neuropathy [Unknown]
  - Transaminases increased [Unknown]
  - Blood bilirubin increased [Unknown]
  - Anaemia [Unknown]
  - Product use in unapproved indication [Unknown]

NARRATIVE: CASE EVENT DATE: 20230101
